FAERS Safety Report 19788205 (Version 3)
Quarter: 2021Q3

REPORT INFORMATION
  Report Type: Report from Study
  Country: US (occurrence: US)
  Receive Date: 20210903
  Receipt Date: 20210925
  Transmission Date: 20211014
  Serious: No
  Sender: FDA-Public Use
  Company Number: NVSC2021US199885

PATIENT
  Age: 55 Year
  Sex: Female

DRUGS (1)
  1. ENTRESTO [Suspect]
     Active Substance: SACUBITRIL\VALSARTAN
     Indication: CARDIAC FAILURE CHRONIC
     Dosage: 1 DF, BID (24/26MG)
     Route: 065

REACTIONS (4)
  - Cough [Unknown]
  - Product dose omission issue [Unknown]
  - Memory impairment [Unknown]
  - Weight decreased [Not Recovered/Not Resolved]
